FAERS Safety Report 12388608 (Version 1)
Quarter: 2016Q2

REPORT INFORMATION
  Report Type: Spontaneous
  Country: US (occurrence: US)
  Receive Date: 20160520
  Receipt Date: 20160520
  Transmission Date: 20160815
  Serious: No
  Sender: FDA-Public Use
  Company Number: US-PFIZER INC-2016226231

PATIENT
  Age: 74 Year
  Sex: Female

DRUGS (4)
  1. MAGNESIUM SULFATE. [Suspect]
     Active Substance: MAGNESIUM SULFATE
     Dosage: UNK
     Dates: start: 2010, end: 20151015
  2. MAGNESIUM SULFATE. [Suspect]
     Active Substance: MAGNESIUM SULFATE
     Dosage: UNK
     Dates: start: 20160216
  3. FISH OIL [Suspect]
     Active Substance: FISH OIL
     Dosage: UNK
     Dates: start: 2010, end: 20151020
  4. FISH OIL [Suspect]
     Active Substance: FISH OIL
     Dosage: UNK
     Dates: start: 20160216

REACTIONS (2)
  - Dysphagia [Unknown]
  - Product size issue [Unknown]
